FAERS Safety Report 18799279 (Version 1)
Quarter: 2021Q1

REPORT INFORMATION
  Report Type: Spontaneous
  Country: US (occurrence: US)
  Receive Date: 20210127
  Receipt Date: 20210127
  Transmission Date: 20210419
  Serious: Yes (Death)
  Sender: FDA-Public Use
  Company Number: None

PATIENT
  Age: 78 Year
  Sex: Male

DRUGS (1)
  1. POMALYST [Suspect]
     Active Substance: POMALIDOMIDE
     Indication: PLASMA CELL MYELOMA
     Route: 048
     Dates: start: 20200220, end: 20210109

REACTIONS (9)
  - Leukocytosis [None]
  - Asthenia [None]
  - Ventricular fibrillation [None]
  - Clostridium difficile colitis [None]
  - Cardiac arrest [None]
  - Pain [None]
  - Cardio-respiratory arrest [None]
  - Sepsis [None]
  - Blood lactic acid increased [None]

NARRATIVE: CASE EVENT DATE: 20210109
